FAERS Safety Report 7682898-7 (Version None)
Quarter: 2011Q3

REPORT INFORMATION
  Report Type: 
  Country: None (occurrence: None)
  Receive Date: 20110815
  Receipt Date: 20110804
  Transmission Date: 20111222
  Serious: Yes (Other)
  Sender: FDA-Public Use
  Company Number: PHEH2011US01006

PATIENT
  Sex: Female

DRUGS (1)
  1. GLEEVEC [Suspect]
     Indication: CHRONIC MYELOID LEUKAEMIA
     Dosage: 100 MG, TID FOR FOUR CONSECUTIVE DAYS THEN QID FOR NEXT THREE CONSECUTIVE DAYS REPEATED WEEKLY
     Route: 048
     Dates: start: 20100203

REACTIONS (2)
  - FALL [None]
  - FEMUR FRACTURE [None]
